FAERS Safety Report 7114038-7 (Version None)
Quarter: 2010Q4

REPORT INFORMATION
  Report Type: 
  Country: None (occurrence: None)
  Receive Date: 20101119
  Receipt Date: 20101111
  Transmission Date: 20110411
  Serious: Yes (Hospitalization)
  Sender: FDA-Public Use
  Company Number: Z0002063A

PATIENT
  Age: 60 Year
  Sex: Male
  Weight: 78.5 kg

DRUGS (4)
  1. PAZOPANIB [Suspect]
     Indication: RENAL CELL CARCINOMA
     Dosage: 800MG PER DAY
     Route: 048
     Dates: start: 20090813, end: 20091015
  2. ACYCLOVIR [Concomitant]
     Indication: ORAL HERPES
     Dosage: 15G SIX TIMES PER DAY
     Route: 061
     Dates: start: 20091029, end: 20091030
  3. PANTOPRAZOLE [Concomitant]
     Indication: PROPHYLAXIS
     Dosage: 40MG PER DAY
     Route: 042
     Dates: start: 20091022, end: 20091026
  4. HEPARIN [Concomitant]
     Indication: THROMBOSIS PROPHYLAXIS
     Dosage: 5000UNIT THREE TIMES PER DAY
     Route: 030
     Dates: start: 20091023, end: 20091025

REACTIONS (8)
  - DIARRHOEA [None]
  - GASTRIC FISTULA [None]
  - ORAL HERPES [None]
  - PANCREATIC ABSCESS [None]
  - SEPSIS [None]
  - SEPTIC SHOCK [None]
  - TOOTH EXTRACTION [None]
  - VOMITING [None]
